FAERS Safety Report 7073138-0 (Version None)
Quarter: 2010Q4

REPORT INFORMATION
  Report Type: 
  Country: None (occurrence: None)
  Receive Date: 20101029
  Receipt Date: 20100426
  Transmission Date: 20110411
  Serious: No
  Sender: FDA-Public Use
  Company Number: A0857345A

PATIENT
  Sex: Female

DRUGS (3)
  1. ADVAIR DISKUS 100/50 [Suspect]
     Indication: CHRONIC OBSTRUCTIVE PULMONARY DISEASE
     Route: 055
  2. MILK [Suspect]
  3. UNSPECIFIED MEDICATION [Concomitant]

REACTIONS (3)
  - PRURITUS [None]
  - SKIN DISORDER [None]
  - URTICARIA [None]
